FAERS Safety Report 7340883-9 (Version None)
Quarter: 2011Q1

REPORT INFORMATION
  Report Type: 
  Country: None (occurrence: None)
  Receive Date: 20110309
  Receipt Date: 20110225
  Transmission Date: 20110831
  Serious: Yes (Death)
  Sender: FDA-Public Use
  Company Number: GB-BAUSCH-2011BL001191

PATIENT
  Age: 95 Year
  Sex: Male
  Weight: 60 kg

DRUGS (3)
  1. PREDNISOLONE [Suspect]
     Indication: IDIOPATHIC THROMBOCYTOPENIC PURPURA
     Route: 048
     Dates: start: 20101008
  2. LANSOPRAZOLE [Concomitant]
     Route: 048
     Dates: start: 20081003
  3. PREDNISOLONE [Concomitant]
     Dates: start: 20080303, end: 20101008

REACTIONS (2)
  - PRODUCT SUBSTITUTION ISSUE [None]
  - GASTROINTESTINAL HAEMORRHAGE [None]
